FAERS Safety Report 14337180 (Version 2)
Quarter: 2018Q1

REPORT INFORMATION
  Report Type: Spontaneous
  Country: FR (occurrence: FR)
  Receive Date: 20171229
  Receipt Date: 20180103
  Transmission Date: 20180509
  Serious: Yes (Death)
  Sender: FDA-Public Use
  Company Number: FR-ASTRAZENECA-2017SF31450

PATIENT
  Age: 66 Year
  Sex: Female
  Weight: 55 kg

DRUGS (12)
  1. TAREG [Concomitant]
     Active Substance: VALSARTAN
  2. METEOSPASMYL [Concomitant]
     Active Substance: ALVERINE CITRATE\DIMETHICONE
  3. SPIRIVA [Concomitant]
     Active Substance: TIOTROPIUM BROMIDE MONOHYDRATE
  4. VENTOLINE [Concomitant]
     Active Substance: ALBUTEROL
     Dosage: 100.0UG UNKNOWN
     Route: 055
  5. PIASCLEDINE [Concomitant]
     Active Substance: AVOCADO OIL\SOYBEAN OIL
     Dosage: 300 MG, DAILY
  6. LIPANTHYL [Concomitant]
     Active Substance: FENOFIBRATE
  7. LEXOMIL ROCHE [Concomitant]
     Active Substance: BROMAZEPAM
  8. BRILIQUE [Suspect]
     Active Substance: TICAGRELOR
     Indication: ACUTE CORONARY SYNDROME
     Route: 048
     Dates: start: 20170731
  9. INEXIUM [Concomitant]
     Active Substance: ESOMEPRAZOLE
  10. LACTULOSE. [Concomitant]
     Active Substance: LACTULOSE
     Dosage: 10/15 ML, TWO TIMES A DAY
     Route: 048
  11. DEBRIDAT [Concomitant]
     Active Substance: TRIMEBUTINE MALEATE
  12. UVEDOSE [Concomitant]
     Active Substance: CHOLECALCIFEROL
     Dosage: 100 000 UI 1/3 MONTHS

REACTIONS (1)
  - Atrioventricular block complete [Fatal]

NARRATIVE: CASE EVENT DATE: 20170731
